FAERS Safety Report 9140097 (Version 1)
Quarter: 2013Q1

REPORT INFORMATION
  Report Type: Spontaneous
  Country: US (occurrence: None)
  Receive Date: 20130204
  Receipt Date: 20130204
  Transmission Date: 20140127
  Serious: Yes (Death)
  Sender: FDA-Public Use
  Company Number: NSR_00904_2013

PATIENT
  Age: 36 Year
  Sex: Female

DRUGS (5)
  1. PROPRANOLOL [Suspect]
     Indication: PRODUCT USED FOR UNKNOWN INDICATION
     Dosage: (DF)
     Route: 048
  2. ACETAMINOPHEN [Suspect]
     Dosage: (DF)
     Route: 048
  3. BUPROPION [Suspect]
     Dosage: (DF)
     Route: 048
  4. SALICYLATES NOS [Suspect]
     Dosage: (DF)
     Route: 048
  5. DIPHENHYDRAMINE [Suspect]
     Dosage: (DF)
     Route: 048

REACTIONS (4)
  - Poisoning [None]
  - Completed suicide [None]
  - Respiratory arrest [None]
  - Cardiac arrest [None]
